FAERS Safety Report 24835248 (Version 1)
Quarter: 2025Q1

REPORT INFORMATION
  Report Type: Spontaneous
  Country: GB (occurrence: GB)
  Receive Date: 20250113
  Receipt Date: 20250113
  Transmission Date: 20250409
  Serious: Yes (Other)
  Sender: ORGANON
  Company Number: None

PATIENT
  Age: 57 Year
  Sex: Male
  Weight: 146 kg

DRUGS (2)
  1. LOSARTAN POTASSIUM [Suspect]
     Active Substance: LOSARTAN POTASSIUM
     Indication: Hypertension
     Dosage: 75 MILLIGRAM, QD
  2. INDAPAMIDE [Concomitant]
     Active Substance: INDAPAMIDE

REACTIONS (1)
  - Abnormal weight gain [Not Recovered/Not Resolved]
